FAERS Safety Report 7766309-9 (Version None)
Quarter: 2011Q3

REPORT INFORMATION
  Report Type: 
  Country: None (occurrence: None)
  Receive Date: 20110922
  Receipt Date: 20110915
  Transmission Date: 20111222
  Serious: Yes (Hospitalization)
  Sender: FDA-Public Use
  Company Number: US-BIOGENIDEC-2011BI035480

PATIENT
  Age: 52 Year
  Sex: Male

DRUGS (4)
  1. AVONEX [Suspect]
     Route: 030
     Dates: start: 20080701, end: 20081202
  2. AVONEX [Suspect]
     Route: 030
     Dates: end: 20070901
  3. AVONEX [Suspect]
     Indication: MULTIPLE SCLEROSIS
     Route: 030
     Dates: start: 20090820
  4. AVONEX [Suspect]
     Route: 030
     Dates: start: 20021029

REACTIONS (2)
  - ASTHMA [None]
  - DEPRESSION [None]
